FAERS Safety Report 23266628 (Version 2)
Quarter: 2024Q3

REPORT INFORMATION
  Report Type: Spontaneous
  Country: SG (occurrence: SG)
  Receive Date: 20231206
  Receipt Date: 20240710
  Transmission Date: 20241016
  Serious: No
  Sender: ROCHE
  Company Number: SG-ROCHE-3385123

PATIENT
  Age: 63 Year
  Sex: Female

DRUGS (1)
  1. PHESGO [Suspect]
     Active Substance: HYALURONIDASE-ZZXF\PERTUZUMAB\TRASTUZUMAB
     Indication: Breast cancer
     Route: 065

REACTIONS (9)
  - Fatigue [Unknown]
  - Somnolence [Unknown]
  - Diarrhoea [Unknown]
  - Ulcer [Unknown]
  - Abdominal distension [Unknown]
  - Body temperature increased [Unknown]
  - Alopecia [Unknown]
  - Ageusia [Unknown]
  - Mental impairment [Unknown]
